FAERS Safety Report 12491338 (Version 1)
Quarter: 2016Q2

REPORT INFORMATION
  Report Type: Spontaneous
  Country: US (occurrence: None)
  Receive Date: 20160622
  Receipt Date: 20160622
  Transmission Date: 20160815
  Serious: Yes (Death, Life-Threatening, Hospitalization, Disabling)
  Sender: FDA-Public Use
  Company Number: None

PATIENT
  Age: 72 Year
  Sex: Male
  Weight: 86.18 kg

DRUGS (1)
  1. KEYTRUDA [Suspect]
     Active Substance: PEMBROLIZUMAB
     Indication: METASTATIC MALIGNANT MELANOMA
     Dosage: INTO THE VEIN
     Route: 042
     Dates: start: 20160412, end: 20160503

REACTIONS (3)
  - Dyspnoea [None]
  - Blindness [None]
  - Decreased appetite [None]

NARRATIVE: CASE EVENT DATE: 20160524
